FAERS Safety Report 6538107-5 (Version None)
Quarter: 2009Q4

REPORT INFORMATION
  Report Type: 
  Country: None (occurrence: None)
  Receive Date: 20091231
  Receipt Date: 20090803
  Transmission Date: 20100525
  Serious: Yes (Other)
  Sender: FDA-Public Use
  Company Number: 204028USA

PATIENT
  Age: 80 Year
  Sex: Male

DRUGS (1)
  1. AMIODARONE HYDROCHLORIDE [Suspect]
     Dosage: (200 MG), ORAL
     Route: 048

REACTIONS (3)
  - HEART RATE DECREASED [None]
  - INTERSTITIAL LUNG DISEASE [None]
  - SPINAL COMPRESSION FRACTURE [None]
